FAERS Safety Report 16171472 (Version 2)
Quarter: 2019Q3

REPORT INFORMATION
  Report Type: Report from Study
  Country: US (occurrence: HU)
  Receive Date: 20190408
  Receipt Date: 20190705
  Transmission Date: 20191004
  Serious: Yes (Other)
  Sender: FDA-Public Use
  Company Number: US-SUNOVION-2019SUN001389

PATIENT

DRUGS (1)
  1. INDACATEROL AND GLYCOPYRROLATE [Suspect]
     Active Substance: GLYCOPYRROLATE\INDACATEROL MALEATE
     Indication: CHRONIC OBSTRUCTIVE PULMONARY DISEASE
     Dosage: UNK
     Route: 065
     Dates: end: 20190315

REACTIONS (10)
  - Diabetes mellitus [Not Recovered/Not Resolved]
  - Hyperglycaemia [Unknown]
  - Oral bacterial infection [Unknown]
  - Asthma-chronic obstructive pulmonary disease overlap syndrome [Unknown]
  - Visual impairment [Unknown]
  - Conjunctivitis [Not Recovered/Not Resolved]
  - Dyspnoea exertional [Not Recovered/Not Resolved]
  - pH body fluid abnormal [Unknown]
  - Multiple allergies [Not Recovered/Not Resolved]
  - Vision blurred [Unknown]
